FAERS Safety Report 17000483 (Version 2)
Quarter: 2019Q4

REPORT INFORMATION
  Report Type: Spontaneous
  Country: US (occurrence: US)
  Receive Date: 20191106
  Receipt Date: 20191111
  Transmission Date: 20200122
  Serious: Yes (Other)
  Sender: FDA-Public Use
  Company Number: US-GILEAD-2019-0435885

PATIENT
  Age: 62 Year
  Sex: Male

DRUGS (5)
  1. EPCLUSA [Suspect]
     Active Substance: SOFOSBUVIR\VELPATASVIR
     Indication: CHRONIC HEPATITIS C
     Dosage: 1 DOSAGE FORM, QD
     Route: 048
     Dates: start: 201910
  2. XIFAXAN [Concomitant]
     Active Substance: RIFAXIMIN
  3. KLONOPIN [Concomitant]
     Active Substance: CLONAZEPAM
  4. LACTULOSE. [Concomitant]
     Active Substance: LACTULOSE
  5. OMEPRAZOLE. [Concomitant]
     Active Substance: OMEPRAZOLE

REACTIONS (5)
  - Visual impairment [Not Recovered/Not Resolved]
  - Head discomfort [Not Recovered/Not Resolved]
  - Hepatic encephalopathy [Not Recovered/Not Resolved]
  - Headache [Unknown]
  - Altered visual depth perception [Not Recovered/Not Resolved]

NARRATIVE: CASE EVENT DATE: 20191015
